FAERS Safety Report 9757179 (Version 1)
Quarter: 2013Q4

REPORT INFORMATION
  Report Type: Report from Study
  Country: GB (occurrence: GB)
  Receive Date: 20131213
  Receipt Date: 20131213
  Transmission Date: 20140711
  Serious: Yes (Other)
  Sender: FDA-Public Use
  Company Number: GB-BAXTER-2013BAX050495

PATIENT
  Sex: 0

DRUGS (5)
  1. MANNITOL 20% SOLUTION FOR INFUSION BP [Suspect]
     Indication: BRAIN OEDEMA
     Dosage: 1 G/KG
     Route: 042
  2. MANNITOL 20% SOLUTION FOR INFUSION BP [Suspect]
     Dosage: 1 G/KG
     Route: 042
  3. MANNITOL 20% SOLUTION FOR INFUSION BP [Suspect]
     Dosage: 1 G/KG
     Route: 042
  4. DEXAMETHASONE [Suspect]
     Indication: BRAIN OEDEMA
     Dosage: STAT
  5. DEXAMETHASONE [Suspect]

REACTIONS (4)
  - Drug ineffective [Unknown]
  - Renal failure [Unknown]
  - Respiratory arrest [Unknown]
  - Brain herniation [Unknown]
